FAERS Safety Report 6242497-0 (Version None)
Quarter: 2009Q2

REPORT INFORMATION
  Report Type: 
  Country: None (occurrence: None)
  Receive Date: 20090622
  Receipt Date: 20090622
  Transmission Date: 20091009
  Serious: Yes (Other)
  Sender: FDA-Public Use
  Company Number: None

PATIENT
  Age: 29 Year
  Sex: Male
  Weight: 79.3795 kg

DRUGS (2)
  1. TAMIFLU [Suspect]
     Indication: INFLUENZA
     Dosage: 1 CAPSULE DAILY PO
     Route: 048
     Dates: start: 20090612, end: 20090617
  2. TAMIFLU [Suspect]
     Indication: PROPHYLAXIS
     Dosage: 1 CAPSULE DAILY PO
     Route: 048
     Dates: start: 20090612, end: 20090617

REACTIONS (8)
  - AGITATION [None]
  - DISCOMFORT [None]
  - FEAR [None]
  - HEADACHE [None]
  - MOOD ALTERED [None]
  - NAUSEA [None]
  - PARAESTHESIA [None]
  - PARANOIA [None]
